FAERS Safety Report 4344414-7 (Version None)
Quarter: 2004Q2

REPORT INFORMATION
  Report Type: 
  Country: None (occurrence: None)
  Receive Date: 20040421
  Receipt Date: 20040421
  Transmission Date: 20050107
  Serious: No
  Sender: FDA-Public Use
  Company Number: None

PATIENT
  Age: 72 Year
  Sex: Male

DRUGS (6)
  1. AMIODARONE HCL [Suspect]
     Indication: ATRIAL FIBRILLATION
     Dosage: 200 MG QD PO
     Route: 048
     Dates: start: 20011011, end: 20040224
  2. METOPROLOL [Concomitant]
  3. SIMVASTATIN [Concomitant]
  4. TOLTENODINE [Concomitant]
  5. VITAMIN E [Concomitant]
  6. NTG SL [Concomitant]

REACTIONS (6)
  - ASTHENIA [None]
  - HEART RATE INCREASED [None]
  - HYPERTHYROIDISM [None]
  - PALPITATIONS [None]
  - THYROIDITIS [None]
  - WEIGHT DECREASED [None]
